FAERS Safety Report 8987894 (Version 2)
Quarter: 2013Q2

REPORT INFORMATION
  Report Type: Spontaneous
  Country: FR (occurrence: FR)
  Receive Date: 20121227
  Receipt Date: 20130410
  Transmission Date: 20140414
  Serious: Yes (Hospitalization)
  Sender: FDA-Public Use
  Company Number: FR-GLAXOSMITHKLINE-B0854256A

PATIENT
  Age: 62 Year
  Sex: Female

DRUGS (3)
  1. ZOPHREN [Suspect]
     Indication: VOMITING
     Dosage: 8MG SINGLE DOSE
     Route: 042
     Dates: start: 20121107, end: 20121107
  2. CARBOPLATINE [Suspect]
     Indication: NEOPLASM MALIGNANT
     Dosage: 400MG SINGLE DOSE
     Route: 042
     Dates: start: 20121107, end: 20121107
  3. SOLUMEDROL [Concomitant]
     Indication: NEOPLASM MALIGNANT
     Dosage: 40MG SINGLE DOSE
     Route: 042
     Dates: start: 20121107, end: 20121107

REACTIONS (7)
  - Hypersensitivity [Recovered/Resolved]
  - Hypotension [Recovered/Resolved]
  - Erythema [Recovered/Resolved]
  - Diarrhoea [Recovered/Resolved]
  - Vomiting [Recovered/Resolved]
  - Asthenia [Recovered/Resolved]
  - Chills [Recovered/Resolved]
